FAERS Safety Report 18092195 (Version 1)
Quarter: 2020Q3

REPORT INFORMATION
  Report Type: Spontaneous
  Country: US (occurrence: US)
  Receive Date: 20200730
  Receipt Date: 20200730
  Transmission Date: 20201103
  Serious: No
  Sender: FDA-Public Use
  Company Number: None

PATIENT

DRUGS (1)
  1. TECHNETIUM TC?99M  TILMANOCEPT [Suspect]
     Active Substance: TECHNETIUM TC-99M TILMANOCEPT

REACTIONS (1)
  - Product label issue [None]

NARRATIVE: CASE EVENT DATE: 202006
